FAERS Safety Report 21097046 (Version 2)
Quarter: 2022Q3

REPORT INFORMATION
  Report Type: Spontaneous
  Country: US (occurrence: US)
  Receive Date: 20220719
  Receipt Date: 20220721
  Transmission Date: 20221027
  Serious: Yes (Other)
  Sender: FDA-Public Use
  Company Number: US-CELLTRION INC.-2022US011201

PATIENT

DRUGS (2)
  1. TRUXIMA [Suspect]
     Active Substance: RITUXIMAB-ABBS
     Indication: Dermatomyositis
     Dosage: 300 MG EVERY WEEK FOR 4 DOSES, AND THEN EVERY 6
  2. TRUXIMA [Suspect]
     Active Substance: RITUXIMAB-ABBS
     Indication: Juvenile idiopathic arthritis

REACTIONS (4)
  - Dermatomyositis [Unknown]
  - Juvenile idiopathic arthritis [Unknown]
  - Childhood [Unknown]
  - Off label use [Unknown]
